FAERS Safety Report 7557312-2 (Version None)
Quarter: 2011Q2

REPORT INFORMATION
  Report Type: 
  Country: None (occurrence: None)
  Receive Date: 20110616
  Receipt Date: 20110616
  Transmission Date: 20111010
  Serious: Yes (Other)
  Sender: FDA-Public Use
  Company Number: None

PATIENT
  Age: 21 Year
  Sex: Female
  Weight: 54.4316 kg

DRUGS (1)
  1. HAWAIIAN TROPICS - SHIMMER EFFECT - SPF 20 HAWAIIAN TROPICS [Suspect]
     Indication: PROPHYLAXIS AGAINST SOLAR RADIATION
     Dosage: ENOUGH TO COVER THE BODY EVERY HOUR TOPICAL 060
     Route: 061
     Dates: start: 20110530

REACTIONS (5)
  - SKIN DISORDER [None]
  - POISONING [None]
  - SUNBURN [None]
  - PRODUCT MEASURED POTENCY ISSUE [None]
  - APPLICATION SITE PHOTOSENSITIVITY REACTION [None]
